FAERS Safety Report 24622258 (Version 1)
Quarter: 2024Q4

REPORT INFORMATION
  Report Type: Spontaneous
  Country: US (occurrence: US)
  Receive Date: 20241114
  Receipt Date: 20241114
  Transmission Date: 20250115
  Serious: No
  Sender: SANOFI AVENTIS
  Company Number: US-SA-2024SA326754

PATIENT
  Sex: Male
  Weight: 72.73 kg

DRUGS (4)
  1. DUPIXENT [Suspect]
     Active Substance: DUPILUMAB
     Dosage: UNK
  2. TACROLIMUS [Concomitant]
     Active Substance: TACROLIMUS
  3. OPZELURA [Concomitant]
     Active Substance: RUXOLITINIB PHOSPHATE
  4. CYCLOBENZAPRINE [Concomitant]
     Active Substance: CYCLOBENZAPRINE

REACTIONS (1)
  - Eye disorder [Unknown]
